FAERS Safety Report 16537043 (Version 1)
Quarter: 2019Q3

REPORT INFORMATION
  Report Type: Spontaneous
  Country: US (occurrence: US)
  Receive Date: 20190707
  Receipt Date: 20190707
  Transmission Date: 20191004
  Serious: Yes (Hospitalization)
  Sender: FDA-Public Use
  Company Number: US-CELGENEUS-USA-20190700922

PATIENT
  Age: 17 Year
  Sex: Male
  Weight: 54 kg

DRUGS (23)
  1. POSACONAZOLE [Concomitant]
     Active Substance: POSACONAZOLE
     Indication: PROPHYLAXIS
     Dosage: 300 MILLIGRAM
     Route: 048
     Dates: start: 20190610
  2. METHOTREXATE. [Concomitant]
     Active Substance: METHOTREXATE
     Indication: ACUTE MYELOID LEUKAEMIA
     Route: 065
     Dates: start: 20160520, end: 20170515
  3. METHOTREXATE. [Concomitant]
     Active Substance: METHOTREXATE
     Route: 065
     Dates: start: 20170515, end: 20170626
  4. METHOTREXATE. [Concomitant]
     Active Substance: METHOTREXATE
     Dosage: 23 MILLIGRAM
     Route: 041
     Dates: start: 20190612, end: 20190612
  5. METHOTREXATE. [Concomitant]
     Active Substance: METHOTREXATE
     Dosage: 16 MILLIGRAM
     Route: 041
     Dates: start: 20190614, end: 20190614
  6. ONDANSETRON [Concomitant]
     Active Substance: ONDANSETRON
     Indication: VOMITING
     Dosage: 8 MILLIGRAM
     Route: 048
     Dates: start: 20190307, end: 20190604
  7. CYCLOSPORINE. [Concomitant]
     Active Substance: CYCLOSPORINE
     Dosage: 70 MILLIGRAM
     Route: 041
     Dates: start: 20190617
  8. RIFAXIMIN. [Concomitant]
     Active Substance: RIFAXIMIN
     Indication: PROPHYLAXIS
     Dosage: 400 MILLIGRAM
     Route: 048
     Dates: start: 20190604
  9. VENETOCLAX. [Suspect]
     Active Substance: VENETOCLAX
     Indication: NEOPLASM MALIGNANT
     Dosage: 100 MILLIGRAM
     Route: 048
     Dates: start: 20190307, end: 20190307
  10. ONDANSETRON [Concomitant]
     Active Substance: ONDANSETRON
     Indication: NAUSEA
     Dosage: 8 MILLIGRAM
     Route: 041
     Dates: start: 20190304, end: 20190308
  11. ONDANSETRON [Concomitant]
     Active Substance: ONDANSETRON
     Dosage: 24 MILLIGRAM
     Route: 048
     Dates: start: 20190604, end: 20190611
  12. CYCLOSPORINE. [Concomitant]
     Active Substance: CYCLOSPORINE
     Dosage: 80 MILLIGRAM
     Route: 041
     Dates: start: 20190611, end: 20190614
  13. METHOTREXATE. [Concomitant]
     Active Substance: METHOTREXATE
     Indication: PROPHYLAXIS
     Route: 065
     Dates: start: 20160408, end: 20160422
  14. HYDRALAZINE [Concomitant]
     Active Substance: HYDRALAZINE HYDROCHLORIDE
     Indication: HYPERTENSION
     Dosage: 5.3 MILLIGRAM
     Route: 041
     Dates: start: 20190614
  15. RIFAXIMIN. [Concomitant]
     Active Substance: RIFAXIMIN
     Dosage: 375 MILLIGRAM
     Route: 048
     Dates: start: 20190604
  16. CYCLOSPORINE. [Concomitant]
     Active Substance: CYCLOSPORINE
     Indication: PROPHYLAXIS
     Dosage: 155 MILLIGRAM
     Route: 041
     Dates: start: 20190609, end: 20190611
  17. METHOTREXATE. [Concomitant]
     Active Substance: METHOTREXATE
     Dosage: 16 MILLIGRAM
     Route: 041
     Dates: start: 20190622, end: 20190622
  18. AZACITIDINE. [Suspect]
     Active Substance: AZACITIDINE
     Indication: NEOPLASM MALIGNANT
     Dosage: 75 MILLIGRAM/SQ. METER
     Route: 041
     Dates: start: 20190310, end: 20190430
  19. VENETOCLAX. [Suspect]
     Active Substance: VENETOCLAX
     Dosage: 400 MILLIGRAM
     Route: 048
     Dates: start: 20190309, end: 20190524
  20. CYCLOSPORINE. [Concomitant]
     Active Substance: CYCLOSPORINE
     Dosage: 60 MILLIGRAM
     Route: 041
     Dates: start: 20190614, end: 20190617
  21. NORVASC [Concomitant]
     Active Substance: AMLODIPINE BESYLATE
     Indication: HYPERTENSION
     Dosage: 5 MILLIGRAM
     Route: 048
     Dates: start: 20190616
  22. VENETOCLAX. [Suspect]
     Active Substance: VENETOCLAX
     Dosage: 200 MILLIGRAM
     Route: 048
     Dates: start: 20190308, end: 20190308
  23. METHOTREXATE. [Concomitant]
     Active Substance: METHOTREXATE
     Dosage: 16 MILLIGRAM
     Route: 041
     Dates: start: 20190617, end: 20190617

REACTIONS (1)
  - Stomatitis [Recovered/Resolved]

NARRATIVE: CASE EVENT DATE: 20190621
